FAERS Safety Report 8536277-0 (Version None)
Quarter: 2012Q3

REPORT INFORMATION
  Report Type: 
  Country: None (occurrence: None)
  Receive Date: 20120725
  Receipt Date: 20120719
  Transmission Date: 20120928
  Serious: Yes (Hospitalization)
  Sender: FDA-Public Use
  Company Number: US-JNJFOC-20120710947

PATIENT
  Sex: Female
  Weight: 65 kg

DRUGS (9)
  1. AMITRIPTYLINE HYDROCHLORIDE [Concomitant]
  2. OMEPRAZOLE [Concomitant]
  3. TYLENOL [Concomitant]
  4. REMICADE [Suspect]
     Indication: CROHN'S DISEASE
     Route: 042
     Dates: start: 20110418
  5. REMICADE [Suspect]
     Route: 042
     Dates: start: 20120305
  6. MULTI-VITAMINS [Concomitant]
  7. REMICADE [Suspect]
     Route: 042
     Dates: start: 20120109
  8. PREDNISONE [Concomitant]
  9. MIRALAX [Concomitant]

REACTIONS (1)
  - CROHN'S DISEASE [None]
